FAERS Safety Report 7404377-4 (Version None)
Quarter: 2011Q2

REPORT INFORMATION
  Report Type: 
  Country: None (occurrence: None)
  Receive Date: 20110408
  Receipt Date: 20090331
  Transmission Date: 20111010
  Serious: Yes (Death)
  Sender: FDA-Public Use
  Company Number: US-BAYER-200913592NA

PATIENT
  Sex: Male
  Weight: 98.413 kg

DRUGS (24)
  1. RENAX [Concomitant]
  2. MAGNEVIST [Suspect]
     Indication: NUCLEAR MAGNETIC RESONANCE IMAGING BRAIN
  3. PREDNISONE [Concomitant]
  4. NORVASC [Concomitant]
  5. OPTIMARK [Suspect]
     Indication: NUCLEAR MAGNETIC RESONANCE IMAGING
  6. MULTIHANCE [Suspect]
     Indication: NUCLEAR MAGNETIC RESONANCE IMAGING
  7. PROHANCE [Suspect]
     Indication: NUCLEAR MAGNETIC RESONANCE IMAGING
  8. NIFEDIPINE [Concomitant]
  9. OMNISCAN [Suspect]
     Indication: NUCLEAR MAGNETIC RESONANCE IMAGING
     Dosage: 20 ML, ONCE
     Dates: start: 19990802, end: 19990802
  10. OMNISCAN [Suspect]
     Indication: NUCLEAR MAGNETIC RESONANCE IMAGING BRAIN
     Dosage: 30 ML, ONCE
     Dates: start: 20030714, end: 20030714
  11. VALCYTE [Concomitant]
  12. CYCLOSPORINE [Concomitant]
  13. EPOGEN [Concomitant]
  14. LABETALOL [Concomitant]
  15. NEURONTIN [Concomitant]
  16. TEMAZEPAM [Concomitant]
  17. MAGNEVIST [Suspect]
     Indication: NUCLEAR MAGNETIC RESONANCE IMAGING
     Dosage: 10 ML, ONCE
     Route: 042
     Dates: start: 20050310, end: 20050310
  18. CELLCEPT [Concomitant]
  19. CLONIDINE [Concomitant]
  20. ZOLOFT [Concomitant]
  21. GABAPENTIN [Concomitant]
  22. LEVAQUIN [Concomitant]
  23. METOPROLOL [Concomitant]
  24. RENAGEL [Concomitant]

REACTIONS (22)
  - FIBROSIS [None]
  - ANHEDONIA [None]
  - EMOTIONAL DISTRESS [None]
  - ISCHAEMIA [None]
  - URINARY INCONTINENCE [None]
  - PULMONARY OEDEMA [None]
  - PAIN [None]
  - ANXIETY [None]
  - MUSCLE DISORDER [None]
  - CARDIOMEGALY [None]
  - PRURITUS [None]
  - RENAL ATROPHY [None]
  - MOBILITY DECREASED [None]
  - SKIN DISCOLOURATION [None]
  - BRONCHOPNEUMONIA [None]
  - GENERAL PHYSICAL HEALTH DETERIORATION [None]
  - SKIN DISORDER [None]
  - MYALGIA [None]
  - PULMONARY CONGESTION [None]
  - NEPHROGENIC SYSTEMIC FIBROSIS [None]
  - SCAR [None]
  - BURNING SENSATION [None]
